FAERS Safety Report 21024687 (Version 7)
Quarter: 2024Q1

REPORT INFORMATION
  Report Type: Spontaneous
  Country: US (occurrence: US)
  Receive Date: 20220629
  Receipt Date: 20240209
  Transmission Date: 20240409
  Serious: No
  Sender: FDA-Public Use
  Company Number: US-KARYOPHARM-2022KPT000719

PATIENT

DRUGS (24)
  1. XPOVIO [Suspect]
     Active Substance: SELINEXOR
     Indication: Plasma cell myeloma
     Dosage: 80 MG, WEEKLY FOR 3 WEEKS, 1 WEEK OFF
     Route: 048
     Dates: start: 20220622, end: 202210
  2. XPOVIO [Suspect]
     Active Substance: SELINEXOR
     Dosage: 80 MG, WEEKLY
     Route: 048
     Dates: start: 2022, end: 202301
  3. XPOVIO [Suspect]
     Active Substance: SELINEXOR
     Dosage: 40 MG, WEEKLY
     Route: 048
     Dates: start: 202301, end: 2023
  4. XPOVIO [Suspect]
     Active Substance: SELINEXOR
     Dosage: 40 MG, WEEKLY FOR 3 WEEKS THEN 1 WEEK OFF
     Route: 048
     Dates: start: 2023, end: 2023
  5. XPOVIO [Suspect]
     Active Substance: SELINEXOR
     Dosage: 40 MG, WEEKLY
     Route: 048
     Dates: start: 2023
  6. TOBREX [Concomitant]
     Active Substance: TOBRAMYCIN
  7. ILEVRO [Concomitant]
     Active Substance: NEPAFENAC
  8. DUREZOL [Concomitant]
     Active Substance: DIFLUPREDNATE
  9. DECADRON [Concomitant]
     Active Substance: DEXAMETHASONE
  10. BACTRIM [Concomitant]
     Active Substance: SULFAMETHOXAZOLE\TRIMETHOPRIM
  11. ACYCLOVIR [Concomitant]
     Active Substance: ACYCLOVIR
  12. KYPROLIS [Concomitant]
     Active Substance: CARFILZOMIB
  13. ACETYLCYSTEINE [Concomitant]
     Active Substance: ACETYLCYSTEINE
  14. OMEGA-3 FATTY ACIDS [Concomitant]
     Active Substance: OMEGA-3 FATTY ACIDS
  15. VITAMIN C [Concomitant]
     Active Substance: ASCORBIC ACID
  16. VITAMIN D3 [Concomitant]
     Active Substance: CHOLECALCIFEROL
  17. VITAMIN E [Concomitant]
     Active Substance: .ALPHA.-TOCOPHEROL
  18. MAGNESIUM [Concomitant]
     Active Substance: MAGNESIUM
  19. CALCIUM [Concomitant]
     Active Substance: CALCIUM
  20. FOLIC ACID [Concomitant]
     Active Substance: FOLIC ACID
  21. ZOFRAN [Concomitant]
     Active Substance: ONDANSETRON HYDROCHLORIDE
  22. PROCHLORPERAZINE [Concomitant]
     Active Substance: PROCHLORPERAZINE
  23. TRIAMCINOLONE [Concomitant]
     Active Substance: TRIAMCINOLONE
  24. ZYPREXA [Concomitant]
     Active Substance: OLANZAPINE

REACTIONS (9)
  - Somnolence [Unknown]
  - Rash [Recovered/Resolved]
  - Protein total decreased [Unknown]
  - Balance disorder [Unknown]
  - Hiccups [Not Recovered/Not Resolved]
  - Bone density decreased [Unknown]
  - Fatigue [Not Recovered/Not Resolved]
  - Neutrophil count decreased [Unknown]
  - Platelet count decreased [Unknown]

NARRATIVE: CASE EVENT DATE: 20220101
